FAERS Safety Report 19609360 (Version 1)
Quarter: 2021Q3

REPORT INFORMATION
  Report Type: Other
  Country: ES (occurrence: ES)
  Receive Date: 20210726
  Receipt Date: 20210726
  Transmission Date: 20211014
  Serious: Yes (Other)
  Sender: FDA-Public Use
  Company Number: ES-NOVA LABORATORIES LIMITED-2114259

PATIENT
  Age: 45 Year
  Sex: Male

DRUGS (6)
  1. AZATHIOPRINE. [Suspect]
     Active Substance: AZATHIOPRINE
  2. METHOTREXATE. [Suspect]
     Active Substance: METHOTREXATE
  3. MESALAZINE [Suspect]
     Active Substance: MESALAMINE
  4. CORTICOSTEROID NOS [Suspect]
     Active Substance: CORTICOSTEROID NOS
     Route: 048
  5. PURIXAN [Suspect]
     Active Substance: MERCAPTOPURINE
     Indication: COLITIS ULCERATIVE
  6. ADALIMUMAB [Suspect]
     Active Substance: ADALIMUMAB

REACTIONS (2)
  - Off label use [None]
  - Hepatotoxicity [Unknown]
